FAERS Safety Report 6723853-0 (Version None)
Quarter: 2010Q2

REPORT INFORMATION
  Report Type: 
  Country: None (occurrence: None)
  Receive Date: 20100513
  Receipt Date: 20100510
  Transmission Date: 20101027
  Serious: Yes (Other)
  Sender: FDA-Public Use
  Company Number: US-PERRIGO-10US009509

PATIENT
  Sex: Male
  Weight: 16.327 kg

DRUGS (1)
  1. IBUPROFEN 20 MG/ML CHILD GRAPE 660 [Suspect]
     Indication: VIRAL INFECTION
     Dosage: 6.25 ML, SINGLE
     Route: 048
     Dates: start: 20100502, end: 20100502

REACTIONS (6)
  - ANGIOEDEMA [None]
  - DYSPNOEA [None]
  - EYELID OEDEMA [None]
  - HYPERSENSITIVITY [None]
  - LIP SWELLING [None]
  - URTICARIA [None]
